FAERS Safety Report 4897235-0 (Version None)
Quarter: 2006Q1

REPORT INFORMATION
  Report Type: 
  Country: None (occurrence: None)
  Receive Date: 20060127
  Receipt Date: 20060110
  Transmission Date: 20060701
  Serious: Yes (Hospitalization)
  Sender: FDA-Public Use
  Company Number: DSA_27580_2005

PATIENT
  Age: 26 Year
  Sex: Male

DRUGS (3)
  1. LORAZEPAM [Suspect]
     Dosage: DF ONCE PO
     Route: 048
     Dates: start: 20051219, end: 20051219
  2. DOXEPIN [Suspect]
     Dosage: DF ONCE PO
     Route: 048
     Dates: start: 20051219, end: 20051219
  3. METHADONE [Suspect]
     Dosage: DF UNK PO
     Route: 048
     Dates: start: 20051219, end: 20051219

REACTIONS (4)
  - MULTIPLE DRUG OVERDOSE [None]
  - SOMNOLENCE [None]
  - SPINAL FRACTURE [None]
  - SUICIDE ATTEMPT [None]
